FAERS Safety Report 8229209-6 (Version None)
Quarter: 2012Q1

REPORT INFORMATION
  Report Type: 
  Country: None (occurrence: None)
  Receive Date: 20120322
  Receipt Date: 20120313
  Transmission Date: 20120608
  Serious: Yes (Other)
  Sender: FDA-Public Use
  Company Number: IN-JNJFOC-20120307820

PATIENT

DRUGS (2)
  1. RISPERIDONE [Suspect]
     Indication: DELIRIUM
     Dosage: 0.25 TO 4 MG
     Route: 065
  2. HALOPERIDOL [Suspect]
     Indication: DELIRIUM
     Dosage: 25 TO 10 MG
     Route: 065

REACTIONS (6)
  - TREMOR [None]
  - COMA [None]
  - TONGUE PARALYSIS [None]
  - CONSTIPATION [None]
  - MUSCLE RIGIDITY [None]
  - SEDATION [None]
